FAERS Safety Report 6589277-4 (Version None)
Quarter: 2010Q1

REPORT INFORMATION
  Report Type: 
  Country: None (occurrence: None)
  Receive Date: 20100218
  Receipt Date: 20100209
  Transmission Date: 20100710
  Serious: Yes (Hospitalization, Disabling)
  Sender: FDA-Public Use
  Company Number: US-PFIZER INC-2009250863

PATIENT
  Sex: Female
  Weight: 108.8 kg

DRUGS (2)
  1. LIPITOR [Suspect]
     Dosage: 20 MG, UNK
  2. LIPITOR [Suspect]
     Dosage: 40 MG, UNK

REACTIONS (9)
  - ARTHRALGIA [None]
  - ASTHENIA [None]
  - DIZZINESS [None]
  - DYSSTASIA [None]
  - GAIT DISTURBANCE [None]
  - HEADACHE [None]
  - LIVER INJURY [None]
  - MUSCULAR WEAKNESS [None]
  - PAIN [None]
